FAERS Safety Report 6253851-5 (Version None)
Quarter: 2009Q3

REPORT INFORMATION
  Report Type: 
  Country: None (occurrence: None)
  Receive Date: 20090701
  Receipt Date: 20090701
  Transmission Date: 20100115
  Serious: Yes (Other)
  Sender: FDA-Public Use
  Company Number: None

PATIENT
  Age: 25 Year
  Sex: Female
  Weight: 122.4712 kg

DRUGS (1)
  1. VALIUM [Suspect]
     Dosage: 5 MG QD

REACTIONS (2)
  - CONVULSION [None]
  - DRUG INEFFECTIVE [None]
